FAERS Safety Report 11984501 (Version 1)
Quarter: 2016Q1

REPORT INFORMATION
  Report Type: Report from Study
  Country: US (occurrence: US)
  Receive Date: 20160201
  Receipt Date: 20160201
  Transmission Date: 20160526
  Serious: Yes (Hospitalization, Other)
  Sender: FDA-Public Use
  Company Number: US-JNJFOC-20141208396

PATIENT
  Age: 49 Year
  Sex: Male

DRUGS (5)
  1. XARELTO [Suspect]
     Active Substance: RIVAROXABAN
     Indication: PULMONARY EMBOLISM
     Route: 048
     Dates: start: 20131001, end: 20140219
  2. XARELTO [Suspect]
     Active Substance: RIVAROXABAN
     Indication: THROMBOSIS PROPHYLAXIS
     Route: 048
     Dates: start: 20131001, end: 20140219
  3. LOVENOX [Suspect]
     Active Substance: ENOXAPARIN SODIUM
     Indication: PRODUCT USED FOR UNKNOWN INDICATION
     Route: 058
     Dates: end: 201402
  4. LOVENOX [Suspect]
     Active Substance: ENOXAPARIN SODIUM
     Indication: PRODUCT USED FOR UNKNOWN INDICATION
     Dosage: 40MG/0.4ML SUBCUTANEOUS 21 COUNT TO INJECT 40MG FOR 24 HOURS.
     Route: 058
     Dates: start: 20140310
  5. HYDRAZINE [Concomitant]
     Active Substance: HYDRAZINE SULFATE
     Indication: BLOOD PRESSURE MEASUREMENT
     Route: 065
     Dates: start: 2006

REACTIONS (3)
  - Internal haemorrhage [Unknown]
  - Diverticulum intestinal haemorrhagic [Recovering/Resolving]
  - Renal failure [Unknown]

NARRATIVE: CASE EVENT DATE: 20140124
